FAERS Safety Report 15826118 (Version 1)
Quarter: 2019Q1

REPORT INFORMATION
  Report Type: Spontaneous
  Country: US (occurrence: US)
  Receive Date: 20190115
  Receipt Date: 20190115
  Transmission Date: 20190417
  Serious: Yes (Other)
  Sender: FDA-Public Use
  Company Number: US-REGENERON PHARMACEUTICALS, INC.-2017-29435

PATIENT

DRUGS (2)
  1. EYLEA [Suspect]
     Active Substance: AFLIBERCEPT
     Indication: NEOVASCULAR AGE-RELATED MACULAR DEGENERATION
     Dosage: 2 MG/0.05 ML, Q4-6WEEKS, LEFT EYE
     Route: 031
     Dates: start: 20160906, end: 20171130
  2. EYLEA [Suspect]
     Active Substance: AFLIBERCEPT
     Indication: CHOROIDAL NEOVASCULARISATION

REACTIONS (5)
  - Eye inflammation [Recovered/Resolved]
  - Visual acuity reduced transiently [Recovered/Resolved]
  - Visual acuity reduced [Unknown]
  - Eye pain [Recovered/Resolved]
  - Vitritis [Recovered/Resolved]

NARRATIVE: CASE EVENT DATE: 20171201
